FAERS Safety Report 5804270-4 (Version None)
Quarter: 2008Q3

REPORT INFORMATION
  Report Type: 
  Country: None (occurrence: None)
  Receive Date: 20080709
  Receipt Date: 20080702
  Transmission Date: 20090109
  Serious: Yes (Other)
  Sender: FDA-Public Use
  Company Number: JP-SP-2008-01125

PATIENT
  Age: 75 Year
  Sex: Female

DRUGS (1)
  1. IMMUCYST [Suspect]
     Indication: BLADDER CANCER
     Route: 043
     Dates: start: 20071201

REACTIONS (5)
  - BLOOD IMMUNOGLOBULIN E INCREASED [None]
  - BRONCHOPULMONARY ASPERGILLOSIS ALLERGIC [None]
  - COUGH [None]
  - EOSINOPHIL COUNT INCREASED [None]
  - PRODUCTIVE COUGH [None]
